FAERS Safety Report 23011422 (Version 2)
Quarter: 2023Q4

REPORT INFORMATION
  Report Type: Spontaneous
  Country: IN (occurrence: IN)
  Receive Date: 20230929
  Receipt Date: 20231229
  Transmission Date: 20240109
  Serious: Yes (Other)
  Sender: FDA-Public Use
  Company Number: IN-BRISTOL-MYERS SQUIBB COMPANY-2023-136225

PATIENT
  Age: 62 Year
  Sex: Male

DRUGS (15)
  1. NIVOLUMAB [Suspect]
     Active Substance: NIVOLUMAB
     Indication: Clear cell renal cell carcinoma
  2. NIVOLUMAB [Suspect]
     Active Substance: NIVOLUMAB
     Dosage: 3 CYCLES
  3. NIVOLUMAB [Suspect]
     Active Substance: NIVOLUMAB
  4. NIVOLUMAB [Suspect]
     Active Substance: NIVOLUMAB
     Dosage: 4TH DOSE ON 25-AUG-2022
  5. NIVOLUMAB [Suspect]
     Active Substance: NIVOLUMAB
     Dosage: 6 CYCLES ON 17-JAN-2023
  6. DENOSUMAB [Concomitant]
     Active Substance: DENOSUMAB
     Indication: Product used for unknown indication
     Route: 058
  7. DENOSUMAB [Concomitant]
     Active Substance: DENOSUMAB
     Dates: start: 20230117
  8. VOTRIENT [Concomitant]
     Active Substance: PAZOPANIB HYDROCHLORIDE
     Indication: Product used for unknown indication
     Dates: start: 20201105
  9. VOTRIENT [Concomitant]
     Active Substance: PAZOPANIB HYDROCHLORIDE
     Dates: start: 20210108
  10. VOTRIENT [Concomitant]
     Active Substance: PAZOPANIB HYDROCHLORIDE
     Dates: start: 20211101
  11. VOTRIENT [Concomitant]
     Active Substance: PAZOPANIB HYDROCHLORIDE
     Dates: start: 20220620
  12. AXITINIB [Concomitant]
     Active Substance: AXITINIB
     Indication: Product used for unknown indication
     Dosage: CONTINUE (WITH OR WITHOUT FOOD)
  13. ULTRACET [Concomitant]
     Active Substance: ACETAMINOPHEN\TRAMADOL HYDROCHLORIDE
     Indication: Pain
     Dosage: 1 SOS
  14. CABOZANTINIB [Concomitant]
     Active Substance: CABOZANTINIB
     Indication: Product used for unknown indication
  15. ZOLEDRONIC ACID [Concomitant]
     Active Substance: ZOLEDRONIC ACID
     Indication: Product used for unknown indication

REACTIONS (14)
  - Immune-mediated adrenal insufficiency [Unknown]
  - Asthenia [Unknown]
  - Ageusia [Unknown]
  - Dysuria [Unknown]
  - Hypophagia [Unknown]
  - Blood thyroid stimulating hormone increased [Unknown]
  - Ureteric obstruction [Unknown]
  - Hypoaesthesia oral [Unknown]
  - Biliary obstruction [Unknown]
  - Malignant neoplasm progression [Unknown]
  - Eyelid disorder [Unknown]
  - COVID-19 [Unknown]
  - Arthralgia [Unknown]
  - Bone lesion [Unknown]

NARRATIVE: CASE EVENT DATE: 20220627
